FAERS Safety Report 10083452 (Version 1)
Quarter: 2014Q2

REPORT INFORMATION
  Report Type: Spontaneous
  Country: US (occurrence: None)
  Receive Date: 20140416
  Receipt Date: 20140416
  Transmission Date: 20141212
  Serious: Yes (Hospitalization)
  Sender: FDA-Public Use
  Company Number: None

PATIENT
  Age: 64 Year
  Sex: Female
  Weight: 55.79 kg

DRUGS (2)
  1. NOVOLOG FLEXPEN [Suspect]
  2. LANTUS SOLOSTAR PEN [Concomitant]

REACTIONS (7)
  - Dehydration [None]
  - Ketosis [None]
  - Blood glucose increased [None]
  - Wrong technique in drug usage process [None]
  - Underdose [None]
  - Device difficult to use [None]
  - Circumstance or information capable of leading to medication error [None]
